FAERS Safety Report 15273177 (Version 3)
Quarter: 2018Q4

REPORT INFORMATION
  Report Type: Report from Study
  Country: US (occurrence: US)
  Receive Date: 20180813
  Receipt Date: 20181016
  Transmission Date: 20190204
  Serious: No
  Sender: FDA-Public Use
  Company Number: PHEH2018US032880

PATIENT
  Age: 66 Year
  Sex: Female
  Weight: 92.1 kg

DRUGS (3)
  1. ENTRESTO [Suspect]
     Active Substance: SACUBITRIL\VALSARTAN
     Dosage: 1 DF (49MG SACUBITRIL AND 51MG VALSARTAN), BID
     Route: 048
     Dates: start: 20180718
  2. ENTRESTO [Suspect]
     Active Substance: SACUBITRIL\VALSARTAN
     Dosage: 1 DF (24MG SACUBITRIL AND 26MG VALSARTAN), BID
     Route: 048
  3. ENTRESTO [Suspect]
     Active Substance: SACUBITRIL\VALSARTAN
     Indication: LEFT VENTRICULAR FAILURE
     Dosage: 1 DF (24MG SACUBITRIL AND 26MG VALSARTAN), BID
     Route: 048

REACTIONS (7)
  - Depression [Unknown]
  - Abnormal dreams [Recovered/Resolved]
  - Movement disorder [Unknown]
  - Mental disorder [Unknown]
  - Feeling abnormal [Unknown]
  - Discomfort [Unknown]
  - Memory impairment [Unknown]

NARRATIVE: CASE EVENT DATE: 20180718
